FAERS Safety Report 8099664-3 (Version None)
Quarter: 2012Q1

REPORT INFORMATION
  Report Type: 
  Country: None (occurrence: None)
  Receive Date: 20120129
  Receipt Date: 20111007
  Transmission Date: 20120608
  Serious: No
  Sender: FDA-Public Use
  Company Number: US-ABBOTT-11P-163-0862145-00

PATIENT
  Age: 44 Year
  Sex: Male

DRUGS (8)
  1. HUMIRA [Suspect]
     Indication: RHEUMATOID ARTHRITIS
     Dates: start: 20070101
  2. LABETALOL HCL [Concomitant]
     Indication: BLOOD PRESSURE
  3. LASIX [Concomitant]
     Indication: OEDEMA
  4. LASIX [Concomitant]
     Indication: BLOOD PRESSURE
  5. OMEPRAZOLE [Concomitant]
     Indication: GASTROOESOPHAGEAL REFLUX DISEASE
     Dosage: DAILY
  6. METHADONE HCL [Concomitant]
     Indication: PAIN
  7. MORPHINE [Concomitant]
     Indication: PAIN
  8. ABILIFY [Concomitant]
     Indication: BIPOLAR DISORDER
     Dosage: DAILY

REACTIONS (6)
  - INJECTION SITE RASH [None]
  - INJECTION SITE PRURITUS [None]
  - INJECTION SITE ERYTHEMA [None]
  - RASH [None]
  - THYROID DISORDER [None]
  - IMMUNE SYSTEM DISORDER [None]
